FAERS Safety Report 7935234-2 (Version None)
Quarter: 2011Q4

REPORT INFORMATION
  Report Type: 
  Country: None (occurrence: None)
  Receive Date: 20111122
  Receipt Date: 20111117
  Transmission Date: 20120403
  Serious: Yes (Death)
  Sender: FDA-Public Use
  Company Number: US-GILEAD-2011-0046742

PATIENT
  Sex: Female

DRUGS (17)
  1. LASIX [Concomitant]
  2. ALBUTEROL [Concomitant]
  3. REVATIO [Concomitant]
  4. CENTRUM                            /00554501/ [Concomitant]
  5. PRILOSEC [Concomitant]
  6. ZYRTEC [Concomitant]
  7. GLUCOPHAGE [Concomitant]
  8. OS-CAL + D [Concomitant]
  9. MAG-OX [Concomitant]
  10. SEREVENT [Concomitant]
  11. LETAIRIS [Suspect]
     Indication: PULMONARY HYPERTENSION
     Dosage: 5 MG, UNK
     Route: 048
     Dates: start: 20100727
  12. COUMADIN [Concomitant]
  13. DEXTROSE [Concomitant]
  14. SINGULAIR [Concomitant]
  15. COZAAR [Concomitant]
  16. ZOCOR [Concomitant]
  17. LEVOTHROID [Concomitant]

REACTIONS (1)
  - DEATH [None]
